FAERS Safety Report 5402366-2 (Version None)
Quarter: 2007Q3

REPORT INFORMATION
  Report Type: 
  Country: None (occurrence: None)
  Receive Date: 20070730
  Receipt Date: 20070730
  Transmission Date: 20080115
  Serious: Yes (Other)
  Sender: FDA-Public Use
  Company Number: None

PATIENT
  Age: 27 Year
  Sex: Male
  Weight: 99.7913 kg

DRUGS (1)
  1. VENTOLIN HFA [Suspect]
     Indication: ASTHMA
     Dosage: 90 MCG PER INHALATION AS NEEDED INHAL
     Route: 055
     Dates: start: 20070401, end: 20070727

REACTIONS (3)
  - ASTHMA [None]
  - CONDITION AGGRAVATED [None]
  - DRUG INEFFECTIVE [None]
